FAERS Safety Report 17614417 (Version 1)
Quarter: 2020Q2

REPORT INFORMATION
  Report Type: Spontaneous
  Country: GB (occurrence: GB)
  Receive Date: 20200402
  Receipt Date: 20200402
  Transmission Date: 20200713
  Serious: Yes (Hospitalization, Disabling, Other)
  Sender: FDA-Public Use
  Company Number: GB-ALKEM LABORATORIES LIMITED-GB-ALKEM-2019-02066

PATIENT

DRUGS (3)
  1. RISPERIDONE. [Suspect]
     Active Substance: RISPERIDONE
     Indication: ACUTE PSYCHOSIS
     Dosage: 2MG ONCE DAILY INCREASED UP TO 6MG ONCE DAILY.
     Route: 048
     Dates: start: 20181120, end: 20181210
  2. QUETIAPINE FUMARATE. [Suspect]
     Active Substance: QUETIAPINE FUMARATE
     Dosage: 100 MG, OD (25MG TWICE DAY 1 WEEK THEN 50MG TWICE DAY)
     Route: 048
     Dates: start: 20190131, end: 20190204
  3. QUETIAPINE FUMARATE. [Suspect]
     Active Substance: QUETIAPINE FUMARATE
     Indication: ACUTE PSYCHOSIS
     Dosage: 50 MG, OD
     Route: 048
     Dates: start: 20190124, end: 20190130

REACTIONS (1)
  - Neuroleptic malignant syndrome [Recovering/Resolving]
